FAERS Safety Report 6807167-6 (Version None)
Quarter: 2010Q2

REPORT INFORMATION
  Report Type: 
  Country: None (occurrence: None)
  Receive Date: 20100629
  Receipt Date: 20080924
  Transmission Date: 20101027
  Serious: No
  Sender: FDA-Public Use
  Company Number: US-PFIZER INC-2008061750

PATIENT
  Sex: Female

DRUGS (4)
  1. XANAX XR [Suspect]
     Indication: ANXIETY
     Dates: start: 20080722
  2. XANAX XR [Suspect]
     Indication: PANIC ATTACK
  3. XANAX [Suspect]
     Dates: end: 20080722
  4. LEXAPRO [Concomitant]
     Dates: start: 20080701

REACTIONS (8)
  - BALANCE DISORDER [None]
  - CHEST DISCOMFORT [None]
  - CLUMSINESS [None]
  - DIZZINESS [None]
  - FEELING DRUNK [None]
  - HEADACHE [None]
  - INSOMNIA [None]
  - PANIC REACTION [None]
